FAERS Safety Report 23879821 (Version 1)
Quarter: 2024Q2

REPORT INFORMATION
  Report Type: Spontaneous
  Country: US (occurrence: US)
  Receive Date: 20240521
  Receipt Date: 20240521
  Transmission Date: 20240716
  Serious: No
  Sender: FDA-Public Use
  Company Number: US-ASTELLAS-2024US012856

PATIENT
  Age: 56 Year
  Sex: Female

DRUGS (4)
  1. VEOZAH [Suspect]
     Active Substance: FEZOLINETANT
     Indication: Menopausal symptoms
     Route: 048
     Dates: start: 202306, end: 20240419
  2. VEOZAH [Suspect]
     Active Substance: FEZOLINETANT
     Indication: Night sweats
     Route: 048
     Dates: start: 20240426
  3. Allerex [Concomitant]
     Indication: Seasonal allergy
     Route: 048
     Dates: start: 2023
  4. FLONASE [Concomitant]
     Active Substance: FLUTICASONE PROPIONATE
     Indication: Seasonal allergy
     Dosage: UNK UNK, ONCE DAILY
     Route: 045
     Dates: start: 2019

REACTIONS (1)
  - Insomnia [Recovering/Resolving]

NARRATIVE: CASE EVENT DATE: 20230601
